FAERS Safety Report 7283645-3 (Version None)
Quarter: 2011Q1

REPORT INFORMATION
  Report Type: 
  Country: None (occurrence: None)
  Receive Date: 20110209
  Receipt Date: 20110128
  Transmission Date: 20110831
  Serious: Yes (Other)
  Sender: FDA-Public Use
  Company Number: ES-ELI_LILLY_AND_COMPANY-ES201101006978

PATIENT
  Age: 63 Year
  Sex: Female

DRUGS (9)
  1. ACOVIL [Concomitant]
     Dates: start: 20060101
  2. BONIVA [Concomitant]
     Dates: start: 20060101
  3. CLORAZEPATE DIPOTASSIUM [Concomitant]
     Dates: start: 20060101
  4. ADIRO [Concomitant]
     Dates: start: 20060101
  5. METFORMIN HCL [Concomitant]
     Dates: start: 20060101
  6. GLYBURIDE [Concomitant]
     Dates: start: 20060101
  7. EMCONCOR [Concomitant]
     Dates: start: 20060101
  8. CYMBALTA [Suspect]
     Dosage: 30 MG, UNK
     Route: 048
     Dates: start: 20100802, end: 20100803
  9. OMEPRAZOLE [Concomitant]
     Dates: start: 20060101

REACTIONS (2)
  - DYSPHAGIA [None]
  - ORAL CANDIDIASIS [None]
